FAERS Safety Report 5521101-0 (Version None)
Quarter: 2007Q4

REPORT INFORMATION
  Report Type: 
  Country: None (occurrence: None)
  Receive Date: 20071119
  Receipt Date: 20071109
  Transmission Date: 20080405
  Serious: Yes (Hospitalization)
  Sender: FDA-Public Use
  Company Number: CA-JNJFOC-20070905996

PATIENT
  Sex: Female
  Weight: 67.2 kg

DRUGS (3)
  1. REMICADE [Suspect]
     Route: 042
  2. REMICADE [Suspect]
     Indication: CROHN'S DISEASE
     Route: 042
  3. INSULIN PUMP [Concomitant]
     Indication: DIABETES MELLITUS

REACTIONS (3)
  - DIARRHOEA [None]
  - HAEMATEMESIS [None]
  - PAIN [None]
